FAERS Safety Report 9437427 (Version 1)
Quarter: 2013Q3

REPORT INFORMATION
  Report Type: Spontaneous
  Country: CA (occurrence: CA)
  Receive Date: 20130802
  Receipt Date: 20130802
  Transmission Date: 20140515
  Serious: Yes (Death, Hospitalization)
  Sender: FDA-Public Use
  Company Number: CA-BAYER-2013-092927

PATIENT
  Age: 23 Year
  Sex: Female
  Weight: 123.81 kg

DRUGS (4)
  1. YASMIN 28 [Suspect]
     Indication: DYSFUNCTIONAL UTERINE BLEEDING
     Dosage: UNK
     Dates: start: 20070621
  2. YASMIN 28 [Suspect]
     Indication: MENSTRUATION IRREGULAR
  3. ADVAIR [Concomitant]
  4. VENTOLIN [Concomitant]

REACTIONS (1)
  - Pulmonary embolism [Fatal]
